FAERS Safety Report 20830464 (Version 1)
Quarter: 2022Q2

REPORT INFORMATION
  Report Type: Spontaneous
  Country: US (occurrence: US)
  Receive Date: 20220514
  Receipt Date: 20220514
  Transmission Date: 20220720
  Serious: No
  Sender: FDA-Public Use
  Company Number: US-SA-SAC20220512000117

PATIENT
  Sex: Female

DRUGS (20)
  1. DUPIXENT [Suspect]
     Active Substance: DUPILUMAB
     Indication: Asthma
     Dosage: 300 MG, QOW
     Route: 058
     Dates: start: 202202
  2. RESTASIS [Concomitant]
     Active Substance: CYCLOSPORINE
  3. FLUTICASONE PROPIONATE [Concomitant]
     Active Substance: FLUTICASONE PROPIONATE
  4. PROAIR DIGIHALER [Concomitant]
     Active Substance: ALBUTEROL SULFATE
  5. TRELEGY ELLIPTA [Concomitant]
     Active Substance: FLUTICASONE FUROATE\UMECLIDINIUM BROMIDE\VILANTEROL TRIFENATATE
  6. ZINC [Concomitant]
     Active Substance: ZINC
  7. VITAMIN D2 [Concomitant]
     Active Substance: ERGOCALCIFEROL
  8. VITAMIN B COMPLEX [Concomitant]
     Active Substance: CYANOCOBALAMIN\DEXPANTHENOL\NIACINAMIDE\PYRIDOXINE HYDROCHLORIDE\RIBOFLAVIN 5^-PHOSPHATE SODIUM\THIA
  9. VITAMIN C [Concomitant]
     Active Substance: ASCORBIC ACID
  10. BIOTIN [Concomitant]
     Active Substance: BIOTIN
  11. TYLENOL [Concomitant]
     Active Substance: ACETAMINOPHEN
  12. FISH OIL [Concomitant]
     Active Substance: FISH OIL
  13. OMEPRAZOLE [Concomitant]
     Active Substance: OMEPRAZOLE
  14. ASPIRIN [Concomitant]
     Active Substance: ASPIRIN
  15. ZYRTEC [Concomitant]
     Active Substance: CETIRIZINE HYDROCHLORIDE
  16. LOSARTAN POTASSIUM [Concomitant]
     Active Substance: LOSARTAN POTASSIUM
  17. METFORMIN [Concomitant]
     Active Substance: METFORMIN HYDROCHLORIDE
  18. PEPCID AC [Concomitant]
     Active Substance: FAMOTIDINE
  19. MODERNA COVID-19 VACCINE [Concomitant]
     Active Substance: ELASOMERAN
  20. PROBIOTICS NOS [Concomitant]
     Active Substance: PROBIOTICS NOS

REACTIONS (1)
  - Vision blurred [Not Recovered/Not Resolved]
